FAERS Safety Report 6609112-5 (Version None)
Quarter: 2010Q1

REPORT INFORMATION
  Report Type: 
  Country: None (occurrence: None)
  Receive Date: 20100226
  Receipt Date: 20100226
  Transmission Date: 20100710
  Serious: Yes (Life-Threatening, Hospitalization)
  Sender: FDA-Public Use
  Company Number: None

PATIENT
  Age: 34 Year
  Sex: Female
  Weight: 92.0802 kg

DRUGS (1)
  1. MONOESSA FOR ORTHO-CYCLEN 0.25 MONONESSA [Suspect]
     Indication: MENSTRUATION IRREGULAR
     Dosage: 1 PILL ONCE A DAY PO
     Route: 048
     Dates: start: 20091124, end: 20100212

REACTIONS (8)
  - BACK PAIN [None]
  - DEEP VEIN THROMBOSIS [None]
  - HEADACHE [None]
  - INSOMNIA [None]
  - MOVEMENT DISORDER [None]
  - NIGHT SWEATS [None]
  - PARAESTHESIA [None]
  - PULMONARY EMBOLISM [None]
